FAERS Safety Report 6604242-6 (Version None)
Quarter: 2010Q1

REPORT INFORMATION
  Report Type: 
  Country: None (occurrence: None)
  Receive Date: 20100226
  Receipt Date: 20090723
  Transmission Date: 20100710
  Serious: No
  Sender: FDA-Public Use
  Company Number: A0797391A

PATIENT
  Age: 59 Year
  Sex: Female

DRUGS (6)
  1. LAMICTAL CD [Suspect]
     Indication: DRUG USE FOR UNKNOWN INDICATION
     Route: 048
  2. LAMOTRIGINE [Suspect]
     Indication: TRIGEMINAL NEURALGIA
     Route: 048
     Dates: start: 20080101
  3. DIOVAN [Concomitant]
  4. FEMARA [Concomitant]
  5. BACLOFEN [Concomitant]
  6. UNKNOWN [Concomitant]

REACTIONS (4)
  - DIZZINESS [None]
  - OFF LABEL USE [None]
  - THERAPEUTIC RESPONSE UNEXPECTED [None]
  - VISION BLURRED [None]
